FAERS Safety Report 12083283 (Version 10)
Quarter: 2019Q4

REPORT INFORMATION
  Report Type: Spontaneous
  Country: US (occurrence: US)
  Receive Date: 20160217
  Receipt Date: 20191115
  Transmission Date: 20200122
  Serious: Yes (Hospitalization, Other)
  Sender: FDA-Public Use
  Company Number: US-PFIZER INC-2016088075

PATIENT
  Age: 73 Year
  Sex: Female
  Weight: 107 kg

DRUGS (19)
  1. TIKOSYN [Suspect]
     Active Substance: DOFETILIDE
     Indication: ATRIAL FLUTTER
     Dosage: 0.5MG, 2X/DAY [(500MCG OR 0.5MG) ]
     Route: 048
  2. WARFARIN [Concomitant]
     Active Substance: WARFARIN
     Indication: CEREBROVASCULAR ACCIDENT
     Dosage: UNK, (5 MG BY 5 TIMES A WEEK AND 7.5 MG THE OTHER 2 DAYS)
     Route: 048
  3. VALSARTAN. [Concomitant]
     Active Substance: VALSARTAN
     Indication: CARDIAC DISORDER
     Dosage: 1 DF, 1X/DAY, (IN THE MORNING)
     Route: 048
  4. TIKOSYN [Suspect]
     Active Substance: DOFETILIDE
     Indication: ATRIAL FIBRILLATION
     Dosage: 500 UG, 2X/DAY
     Route: 048
     Dates: start: 20160202
  5. WARFARIN [Concomitant]
     Active Substance: WARFARIN
     Dosage: 500 MG, UNK [REST OF WEEK]
  6. VALSARTAN. [Concomitant]
     Active Substance: VALSARTAN
     Indication: BLOOD PRESSURE ABNORMAL
     Dosage: 180 MG, 1X/DAY [ONCE IN THE EVENING]
     Route: 048
  7. WARFARIN [Concomitant]
     Active Substance: WARFARIN
     Indication: ANTICOAGULANT THERAPY
     Dosage: 750 MG, WEEKLY
  8. TIKOSYN [Suspect]
     Active Substance: DOFETILIDE
     Indication: ARRHYTHMIA
     Dosage: 500 UG, 2X/DAY
     Route: 048
     Dates: start: 201702
  9. AMLODIPINE [Concomitant]
     Active Substance: AMLODIPINE BESYLATE
     Dosage: 2.5 MG, 1X/DAY, (IN THE AFTERNOON)
  10. TIKOSYN [Suspect]
     Active Substance: DOFETILIDE
     Dosage: 0.5 MG, UNK
     Route: 048
  11. AMLODIPINE [Concomitant]
     Active Substance: AMLODIPINE BESYLATE
     Indication: CARDIAC DISORDER
     Dosage: UNK, 1X/DAY(IN THE EVENING)
     Route: 048
  12. VALSARTAN. [Concomitant]
     Active Substance: VALSARTAN
     Indication: HYPERTENSION
     Dosage: 160 MG, 1X/DAY, (IN THE MORNING)
  13. FLONASE [Concomitant]
     Active Substance: FLUTICASONE PROPIONATE
     Indication: VERTIGO
     Dosage: UNK, AS NEEDED
  14. VITAMIN D3 [Concomitant]
     Active Substance: CHOLECALCIFEROL
     Indication: FATIGUE
     Dosage: 5000 IU, 1X/DAY
     Route: 048
     Dates: start: 201709
  15. TIKOSYN [Suspect]
     Active Substance: DOFETILIDE
     Indication: CARDIAC FLUTTER
     Dosage: 500 UG, UNK (Q 12)
     Route: 048
     Dates: start: 20160119
  16. WARFARIN [Concomitant]
     Active Substance: WARFARIN
     Dosage: UNK, 2X/DAY [5MG AND UP TO 7.5MG TWICE A WEEK]
     Dates: start: 201811
  17. MAGNESIUM [Concomitant]
     Active Substance: MAGNESIUM
     Indication: MAGNESIUM DEFICIENCY
     Dosage: 500 MG, 1X/DAY
     Route: 048
     Dates: start: 2016
  18. APPLE CIDER VINEGAR [Concomitant]
     Active Substance: APPLE CIDER VINEGAR
     Indication: GASTROOESOPHAGEAL REFLUX DISEASE
     Dosage: UNK (ONCE IN A WHILE)
     Dates: start: 201707
  19. ESTER C [Concomitant]
     Indication: SINUSITIS
     Dosage: 1000 MG, 1X/DAY(IN THE EVENING)
     Route: 048

REACTIONS (31)
  - Atrial fibrillation [Recovered/Resolved]
  - Atrial fibrillation [Recovered/Resolved]
  - Nasal congestion [Unknown]
  - Abdominal discomfort [Unknown]
  - Nausea [Recovered/Resolved]
  - Dehydration [Unknown]
  - Metastatic neoplasm [Unknown]
  - Weight decreased [Unknown]
  - Fatigue [Unknown]
  - Weight increased [Unknown]
  - Cardiac flutter [Unknown]
  - Follicle centre lymphoma, follicular grade I, II, III recurrent [Unknown]
  - Visual impairment [Unknown]
  - Stress [Unknown]
  - Urinary tract infection [Unknown]
  - Paraesthesia [Unknown]
  - Tooth fracture [Unknown]
  - Drug ineffective [Unknown]
  - Therapeutic response unexpected [Unknown]
  - Body height decreased [Unknown]
  - Dyspnoea [Unknown]
  - Logorrhoea [Unknown]
  - Gastrooesophageal reflux disease [Unknown]
  - Vomiting [Recovered/Resolved]
  - Hair colour changes [Unknown]
  - Hypotension [Unknown]
  - Pre-existing condition improved [Unknown]
  - Dizziness [Recovered/Resolved]
  - Myocardial infarction [Unknown]
  - Cystitis [Unknown]
  - Malaise [Unknown]

NARRATIVE: CASE EVENT DATE: 201602
